FAERS Safety Report 20026292 (Version 1)
Quarter: 2021Q4

REPORT INFORMATION
  Report Type: Spontaneous
  Country: US (occurrence: US)
  Receive Date: 20211102
  Receipt Date: 20211102
  Transmission Date: 20220303
  Serious: No
  Sender: FDA-Public Use
  Company Number: US-GALDERMA-US2021017734

PATIENT

DRUGS (7)
  1. ADAPALENE [Suspect]
     Active Substance: ADAPALENE
     Indication: Acne
     Dosage: 1 DOSAGE FORM, UNKNOWN
     Route: 061
     Dates: start: 2104
  2. ADAPALENE [Suspect]
     Active Substance: ADAPALENE
     Indication: Eczema
  3. COSMETICS [Suspect]
     Active Substance: COSMETICS
     Indication: Eczema
     Dosage: 1 DOSAGE FORM, QD, ONCE PER DAY
     Route: 061
     Dates: start: 20211015, end: 20211016
  4. COSMETICS [Suspect]
     Active Substance: COSMETICS
     Indication: Acne
     Dosage: 1 DOSAGE FORM, QD, ONCE PER DAY
     Route: 061
     Dates: start: 20211017
  5. DHC deep cleansing oil [Concomitant]
     Indication: Product used for unknown indication
     Dosage: UNKNOWN
     Route: 065
     Dates: start: 2016
  6. AVEENO ECZEMA THERAPY [Concomitant]
     Indication: Product used for unknown indication
     Dosage: UNKNOWN
     Route: 061
     Dates: start: 2020
  7. Neutrogen Hydro Boost Gel-Cream Extra-day [Concomitant]
     Indication: Product used for unknown indication
     Dosage: UNKNOWN
     Route: 061
     Dates: start: 2019

REACTIONS (4)
  - Dry skin [Recovered/Resolved]
  - Skin irritation [Recovered/Resolved]
  - Skin tightness [Recovered/Resolved]
  - Seborrhoea [Recovered/Resolved]

NARRATIVE: CASE EVENT DATE: 20211015
